FAERS Safety Report 17781415 (Version 2)
Quarter: 2020Q2

REPORT INFORMATION
  Report Type: Spontaneous
  Country: PT (occurrence: PT)
  Receive Date: 20200514
  Receipt Date: 20200601
  Transmission Date: 20200714
  Serious: No
  Sender: FDA-Public Use
  Company Number: PT-009507513-2005PRT001066

PATIENT
  Age: 87 Year
  Sex: Female

DRUGS (3)
  1. ZOMARIST [Concomitant]
     Indication: TYPE 2 DIABETES MELLITUS
     Dosage: 1 TABLET IN THE MORNING AND ANOTHER IN THE EVENING. ON 22-APR-2020 ONLY TOOK THE MORNING PILL
     Route: 048
     Dates: end: 20200422
  2. GLICLAZIDE [Suspect]
     Active Substance: GLICLAZIDE
     Indication: TYPE 2 DIABETES MELLITUS
     Dosage: 60 MILLIGRAM, QD (1 TABLET IN THE MORNING AND ANOTHER ONE AT AFTERNOON SNACK), FIRST USE
     Route: 048
     Dates: start: 20200422
  3. STEGLATRO [Suspect]
     Active Substance: ERTUGLIFLOZIN PIDOLATE
     Indication: TYPE 2 DIABETES MELLITUS
     Dosage: 5 MILLIGRAM, QD (1 TABLET AT THE AFTERNOON SNACK), FIRST USE, FORMULATION: FILM-COATED TABLET
     Route: 048
     Dates: start: 20200422

REACTIONS (3)
  - Abdominal pain upper [Recovering/Resolving]
  - Malaise [Recovering/Resolving]
  - Nausea [Recovering/Resolving]

NARRATIVE: CASE EVENT DATE: 20200423
